FAERS Safety Report 16323383 (Version 2)
Quarter: 2019Q3

REPORT INFORMATION
  Report Type: Report from Study
  Country: US (occurrence: US)
  Receive Date: 20190517
  Receipt Date: 20190723
  Transmission Date: 20191004
  Serious: Yes (Hospitalization, Other)
  Sender: FDA-Public Use
  Company Number: US-TESAROUBC-2019-TSO01453-US

PATIENT
  Age: 74 Year
  Sex: Female

DRUGS (2)
  1. ZEJULA [Suspect]
     Active Substance: NIRAPARIB
     Dosage: 200 MG, QAM AFTER BREAKFAST
     Route: 065
     Dates: start: 20190507, end: 20190618
  2. ZEJULA [Suspect]
     Active Substance: NIRAPARIB
     Indication: OVARIAN CANCER
     Dosage: 300 MG, QAM AFTER BREAKFAST
     Route: 065
     Dates: start: 20190327, end: 20190422

REACTIONS (17)
  - Constipation [Not Recovered/Not Resolved]
  - Retching [Not Recovered/Not Resolved]
  - Hypoglycaemia [Unknown]
  - Anaemia [Unknown]
  - Heart rate increased [Not Recovered/Not Resolved]
  - Dyspnoea [Not Recovered/Not Resolved]
  - Fatigue [Not Recovered/Not Resolved]
  - Headache [Unknown]
  - Drug ineffective [Unknown]
  - Toxicity to various agents [Unknown]
  - Flatulence [Not Recovered/Not Resolved]
  - Paranoia [Unknown]
  - Asthenia [Not Recovered/Not Resolved]
  - Insomnia [Not Recovered/Not Resolved]
  - Full blood count decreased [Not Recovered/Not Resolved]
  - Abdominal pain upper [Not Recovered/Not Resolved]
  - Nausea [Not Recovered/Not Resolved]

NARRATIVE: CASE EVENT DATE: 201906
